FAERS Safety Report 6853713-6 (Version None)
Quarter: 2010Q3

REPORT INFORMATION
  Report Type: 
  Country: None (occurrence: None)
  Receive Date: 20100717
  Receipt Date: 20071213
  Transmission Date: 20110219
  Serious: No
  Sender: FDA-Public Use
  Company Number: US-PFIZER INC-2007106217

PATIENT
  Sex: Male
  Weight: 109.09 kg

DRUGS (2)
  1. CHANTIX [Suspect]
     Indication: SMOKING CESSATION THERAPY
     Dates: start: 20071001
  2. NEURONTIN [Concomitant]

REACTIONS (2)
  - ABNORMAL DREAMS [None]
  - WEIGHT INCREASED [None]
